FAERS Safety Report 17466836 (Version 1)
Quarter: 2020Q1

REPORT INFORMATION
  Report Type: Spontaneous
  Country: US (occurrence: US)
  Receive Date: 20200227
  Receipt Date: 20200227
  Transmission Date: 20200409
  Serious: No
  Sender: FDA-Public Use
  Company Number: US-BAYER-2020-033058

PATIENT
  Age: 40 Year
  Sex: Female

DRUGS (1)
  1. MIRALAX [Suspect]
     Active Substance: POLYETHYLENE GLYCOL 3350
     Indication: COLONOSCOPY
     Dosage: 7 DF, EVERY TEN HOUR
     Route: 048

REACTIONS (2)
  - Vomiting [Recovered/Resolved]
  - Drug ineffective for unapproved indication [Unknown]
